FAERS Safety Report 25727112 (Version 1)
Quarter: 2025Q3

REPORT INFORMATION
  Report Type: Spontaneous
  Country: US (occurrence: US)
  Receive Date: 20250826
  Receipt Date: 20250826
  Transmission Date: 20251021
  Serious: Yes (Hospitalization)
  Sender: AMGEN
  Company Number: US-AMGEN-USASP2025166204

PATIENT
  Age: 11 Year
  Sex: Female

DRUGS (4)
  1. BLINCYTO [Suspect]
     Active Substance: BLINATUMOMAB
     Indication: B precursor type acute leukaemia
     Route: 065
     Dates: start: 20250419, end: 2025
  2. BLINCYTO [Suspect]
     Active Substance: BLINATUMOMAB
     Route: 065
     Dates: start: 20250716, end: 202507
  3. BLINCYTO [Suspect]
     Active Substance: BLINATUMOMAB
     Route: 065
     Dates: start: 202507, end: 2025
  4. BLINCYTO [Suspect]
     Active Substance: BLINATUMOMAB
     Route: 065
     Dates: start: 2025

REACTIONS (7)
  - Delirium [Unknown]
  - Headache [Unknown]
  - Nausea [Unknown]
  - Vomiting [Unknown]
  - Tremor [Unknown]
  - Pyrexia [Unknown]
  - Infusion site haemorrhage [Unknown]

NARRATIVE: CASE EVENT DATE: 20250701
